FAERS Safety Report 5832412-3 (Version None)
Quarter: 2008Q3

REPORT INFORMATION
  Report Type: 
  Country: None (occurrence: None)
  Receive Date: 20080731
  Receipt Date: 20080721
  Transmission Date: 20090109
  Serious: Yes (Death)
  Sender: FDA-Public Use
  Company Number: 2008US001658

PATIENT
  Age: 41 Year
  Sex: Male

DRUGS (6)
  1. PROGRAF [Suspect]
     Indication: RENAL TRANSPLANT
     Dosage: 6 MG, UID/QD, ORAL
     Route: 048
  2. PREDNISOLONE TAB [Concomitant]
  3. MYCOPHENOLATE (MYCOPHENOLATE MOFETIL) [Concomitant]
  4. PRAZOSIN GITS [Concomitant]
  5. LOVASTATIN [Concomitant]
  6. LOSARTAN POTASSIUM [Concomitant]

REACTIONS (1)
  - DENGUE FEVER [None]
